FAERS Safety Report 7281266-X (Version None)
Quarter: 2011Q1

REPORT INFORMATION
  Report Type: 
  Country: None (occurrence: None)
  Receive Date: 20110208
  Receipt Date: 20110201
  Transmission Date: 20110831
  Serious: Yes (Other)
  Sender: FDA-Public Use
  Company Number: CHPA2011US02277

PATIENT
  Age: 85 Year
  Sex: Male
  Weight: 71.655 kg

DRUGS (1)
  1. VOLTAREN [Suspect]
     Dosage: 4 G, BID
     Route: 061
     Dates: start: 20110118, end: 20110118

REACTIONS (2)
  - OFF LABEL USE [None]
  - HAEMATOCHEZIA [None]
